FAERS Safety Report 18835333 (Version 1)
Quarter: 2021Q1

REPORT INFORMATION
  Report Type: Spontaneous
  Country: US (occurrence: US)
  Receive Date: 20210203
  Receipt Date: 20210203
  Transmission Date: 20210419
  Serious: Yes (Hospitalization)
  Sender: FDA-Public Use
  Company Number: None

PATIENT
  Sex: Female

DRUGS (4)
  1. TACROLIMUS 1 MG [Concomitant]
     Active Substance: TACROLIMUS
     Dates: start: 20190410
  2. MYCOPHENOLATE [Concomitant]
     Active Substance: MYCOPHENOLIC ACID
     Dates: start: 20200305
  3. TACROLIMUS. [Suspect]
     Active Substance: TACROLIMUS
     Indication: LUNG TRANSPLANT
     Route: 048
     Dates: start: 20151014
  4. ENVARSUS XR [Concomitant]
     Active Substance: TACROLIMUS
     Dates: start: 20191210

REACTIONS (1)
  - Haemoptysis [None]
